FAERS Safety Report 5495957-4 (Version None)
Quarter: 2007Q4

REPORT INFORMATION
  Report Type: 
  Country: None (occurrence: None)
  Receive Date: 20071025
  Receipt Date: 20070307
  Transmission Date: 20080405
  Serious: No
  Sender: FDA-Public Use
  Company Number: A0633745A

PATIENT
  Age: 78 Year
  Sex: Male

DRUGS (10)
  1. ADVAIR DISKUS 100/50 [Suspect]
     Indication: CHRONIC OBSTRUCTIVE PULMONARY DISEASE
     Dosage: 1PUFF TWICE PER DAY
     Route: 055
     Dates: start: 20020801
  2. ISOPTIN SR [Concomitant]
  3. PULMICORT [Concomitant]
  4. ALBUTEROL [Concomitant]
     Route: 055
  5. LASIX [Concomitant]
  6. PROCAINAMIDE [Concomitant]
  7. VALIUM [Concomitant]
  8. SPIRONOLACTONE [Concomitant]
  9. SINGULAIR [Concomitant]
  10. IPRATROPIUM BROMIDE [Concomitant]
     Route: 055

REACTIONS (2)
  - BRONCHITIS [None]
  - PHARMACEUTICAL PRODUCT COMPLAINT [None]
